FAERS Safety Report 14163255 (Version 4)
Quarter: 2019Q2

REPORT INFORMATION
  Report Type: Report from Study
  Country: PA (occurrence: PA)
  Receive Date: 20171106
  Receipt Date: 20190417
  Transmission Date: 20190711
  Serious: Yes (Hospitalization, Other)
  Sender: FDA-Public Use
  Company Number: PHHY2017PA146791

PATIENT
  Age: 55 Year
  Sex: Female
  Weight: 63.49 kg

DRUGS (10)
  1. TASIGNA [Suspect]
     Active Substance: NILOTINIB
     Dosage: 300 MG, QD
     Route: 048
     Dates: start: 20170531, end: 20170613
  2. TASIGNA [Suspect]
     Active Substance: NILOTINIB
     Dosage: 200 MG, UNK
     Route: 065
     Dates: end: 201811
  3. ELTROMBOPAG [Concomitant]
     Active Substance: ELTROMBOPAG
     Dosage: 25 MG, QD (ALSO DURING MAY 2017) AND (DOSE VARIES MANY TIMES FROM BID TO QD)
     Route: 048
     Dates: start: 20170425, end: 20170531
  4. TASIGNA [Suspect]
     Active Substance: NILOTINIB
     Dosage: 600 MG, QD (PRESENTATION OF 150 MG )
     Route: 048
     Dates: start: 20170425
  5. TASIGNA [Suspect]
     Active Substance: NILOTINIB
     Dosage: UNK
     Route: 048
     Dates: start: 20180627
  6. ELTROMBOPAG [Concomitant]
     Active Substance: ELTROMBOPAG
     Indication: PRODUCT USED FOR UNKNOWN INDICATION
     Dosage: 25 MG, BID
     Route: 048
     Dates: start: 20170122
  7. TASIGNA [Suspect]
     Active Substance: NILOTINIB
     Dosage: 600 MG, QD (PRESENTATION OF 150 MG AT A DOSE OF 600 MG DAILY)
     Route: 048
     Dates: start: 20161207, end: 20161214
  8. DASATINIB. [Suspect]
     Active Substance: DASATINIB
     Indication: PRODUCT USED FOR UNKNOWN INDICATION
     Dosage: UNK
     Route: 005
     Dates: start: 20181123
  9. TASIGNA [Suspect]
     Active Substance: NILOTINIB
     Indication: CHRONIC MYELOID LEUKAEMIA
     Dosage: 800 MG, QD (PRESENTATION OF 200 MG)
     Route: 065
     Dates: start: 20161008, end: 20161206
  10. TASIGNA [Suspect]
     Active Substance: NILOTINIB
     Dosage: 600 MG, QD
     Route: 048
     Dates: start: 20170614, end: 20170725

REACTIONS (26)
  - Chronic myeloid leukaemia transformation [Unknown]
  - Aphthous ulcer [Unknown]
  - Glossitis [Unknown]
  - Oral pain [Unknown]
  - Discomfort [Unknown]
  - Intentional self-injury [Unknown]
  - Tympanic membrane perforation [Unknown]
  - Mouth swelling [Unknown]
  - Cytogenetic analysis abnormal [Unknown]
  - Glossodynia [Unknown]
  - Haemoglobin decreased [Unknown]
  - Platelet count decreased [Unknown]
  - Noninfective gingivitis [Unknown]
  - Gingival pain [Unknown]
  - Speech disorder [Unknown]
  - Toxicity to various agents [Unknown]
  - Therapeutic response decreased [Unknown]
  - Contusion [Unknown]
  - Eating disorder [Unknown]
  - Stomatitis [Unknown]
  - Pruritus generalised [Unknown]
  - Oral discomfort [Unknown]
  - Aphasia [Unknown]
  - Otorrhoea [Unknown]
  - Malaise [Unknown]
  - Hyperplasia [Unknown]

NARRATIVE: CASE EVENT DATE: 20161221
